FAERS Safety Report 8443661-2 (Version None)
Quarter: 2012Q2

REPORT INFORMATION
  Report Type: 
  Country: None (occurrence: None)
  Receive Date: 20120618
  Receipt Date: 20120608
  Transmission Date: 20120825
  Serious: Yes (Other)
  Sender: FDA-Public Use
  Company Number: GB-JNJFOC-20120111021

PATIENT
  Sex: Male

DRUGS (2)
  1. RISPERDAL [Suspect]
     Indication: PSYCHOTIC DISORDER
     Dosage: 2MG IN THE MORNING AND 4MG EVERY NIGHT
     Route: 048
     Dates: start: 20111114
  2. RISPERDAL [Suspect]
     Route: 048
     Dates: end: 20120320

REACTIONS (3)
  - MASS [None]
  - BLOOD PROLACTIN INCREASED [None]
  - AGITATION [None]
